FAERS Safety Report 19405208 (Version 6)
Quarter: 2023Q2

REPORT INFORMATION
  Report Type: Spontaneous
  Country: US (occurrence: US)
  Receive Date: 20210611
  Receipt Date: 20230531
  Transmission Date: 20230722
  Serious: Yes (Other)
  Sender: FDA-Public Use
  Company Number: US-RECORDATI RARE DISEASE INC.-2021001029

PATIENT
  Age: 37 Year
  Sex: Female

DRUGS (7)
  1. PANHEMATIN [Suspect]
     Active Substance: HEMIN
     Indication: Porphyria acute
     Dosage: 4 MILLIGRAM/KILOGRAM, QD
     Route: 042
     Dates: start: 20190313, end: 20190313
  2. PANHEMATIN [Suspect]
     Active Substance: HEMIN
     Dosage: 4 MILLIGRAM/KILOGRAM, QD
     Route: 042
     Dates: start: 20190528, end: 20190528
  3. PANHEMATIN [Suspect]
     Active Substance: HEMIN
     Dosage: 4 MILLIGRAM/KILOGRAM, QD
     Route: 042
     Dates: start: 20200227, end: 20200227
  4. PANHEMATIN [Suspect]
     Active Substance: HEMIN
     Dosage: UNK UNK, BIW
     Route: 042
  5. PANHEMATIN [Suspect]
     Active Substance: HEMIN
     Dosage: UNK UNK, UNK
     Route: 042
     Dates: start: 20211005, end: 20211005
  6. PANHEMATIN [Suspect]
     Active Substance: HEMIN
     Dosage: UNK
     Route: 065
     Dates: start: 20230420
  7. ALBUTEROL [Concomitant]
     Active Substance: ALBUTEROL
     Indication: Asthma
     Dosage: UNK UNK, UNK
     Route: 065

REACTIONS (22)
  - Gastric infection [Unknown]
  - Urticaria [Recovered/Resolved]
  - Urticaria [Recovered/Resolved]
  - Back pain [Not Recovered/Not Resolved]
  - Urinary tract infection [Not Recovered/Not Resolved]
  - Nausea [Unknown]
  - Pain [Unknown]
  - Porphyria acute [Unknown]
  - Gastrointestinal motility disorder [Unknown]
  - Bacterial abdominal infection [Recovered/Resolved]
  - COVID-19 [Recovering/Resolving]
  - Abdominal pain [Not Recovered/Not Resolved]
  - Migraine [Unknown]
  - Asthenopia [Unknown]
  - Rash [Unknown]
  - Pyrexia [Unknown]
  - Headache [Unknown]
  - Insurance issue [Unknown]
  - Incorrect route of product administration [Unknown]
  - Off label use [Unknown]
  - Therapy interrupted [Not Recovered/Not Resolved]
  - Product supply issue [Unknown]

NARRATIVE: CASE EVENT DATE: 20190313
